FAERS Safety Report 5615062-3 (Version None)
Quarter: 2008Q1

REPORT INFORMATION
  Report Type: 
  Country: None (occurrence: None)
  Receive Date: 20080205
  Receipt Date: 20080205
  Transmission Date: 20080703
  Serious: Yes (Hospitalization, Other)
  Sender: FDA-Public Use
  Company Number: None

PATIENT
  Age: 37 Year
  Sex: Female
  Weight: 108.8633 kg

DRUGS (1)
  1. CHANTIX [Suspect]
     Indication: SMOKING CESSATION THERAPY
     Dosage: 1 MG TWICE A DAY PO
     Route: 048
     Dates: start: 20071127, end: 20071215

REACTIONS (9)
  - ALCOHOL USE [None]
  - ANXIETY [None]
  - BIPOLAR II DISORDER [None]
  - DEPRESSION [None]
  - INCORRECT DOSE ADMINISTERED [None]
  - INTENTIONAL SELF-INJURY [None]
  - LOSS OF EMPLOYMENT [None]
  - PARANOIA [None]
  - SUICIDAL IDEATION [None]
